FAERS Safety Report 5344757-4 (Version None)
Quarter: 2007Q2

REPORT INFORMATION
  Report Type: 
  Country: None (occurrence: None)
  Receive Date: 20070604
  Receipt Date: 20070525
  Transmission Date: 20071010
  Serious: Yes (Hospitalization)
  Sender: FDA-Public Use
  Company Number: IT-ABBOTT-07P-083-0369482-00

PATIENT
  Sex: Male

DRUGS (3)
  1. KLACID [Suspect]
     Indication: BRONCHOPNEUMOPATHY
     Route: 048
     Dates: start: 20070515, end: 20070518
  2. SALBUTAMOL [Concomitant]
     Indication: DRUG USE FOR UNKNOWN INDICATION
  3. BETAMETHASONE SODIUM PHOSPHATE [Concomitant]
     Indication: DRUG USE FOR UNKNOWN INDICATION

REACTIONS (3)
  - BRONCHOSPASM [None]
  - RESPIRATORY FAILURE [None]
  - URTICARIA GENERALISED [None]
